FAERS Safety Report 12331185 (Version 2)
Quarter: 2021Q2

REPORT INFORMATION
  Report Type: Spontaneous
  Country: US (occurrence: US)
  Receive Date: 20160504
  Receipt Date: 20210512
  Transmission Date: 20210716
  Serious: Yes (Hospitalization)
  Sender: FDA-Public Use
  Company Number: US-UNITED THERAPEUTICS-UNT-2016-006824

PATIENT
  Age: 42 Year
  Sex: Female
  Weight: 61.68 kg

DRUGS (5)
  1. REMODULIN [Suspect]
     Active Substance: TREPROSTINIL
     Indication: PULMONARY HYPERTENSION
     Dosage: UNK, CONTINUING
     Route: 058
     Dates: start: 20130905
  2. LETAIRIS [Concomitant]
     Active Substance: AMBRISENTAN
     Indication: PRODUCT USED FOR UNKNOWN INDICATION
     Route: 065
  3. ADCIRCA [Concomitant]
     Active Substance: TADALAFIL
     Indication: PRODUCT USED FOR UNKNOWN INDICATION
     Dosage: UNK
     Route: 065
  4. REMODULIN [Suspect]
     Active Substance: TREPROSTINIL
     Indication: PULMONARY ARTERIAL HYPERTENSION
     Dosage: 0.0915 ?G/KG, CONTINUING
     Route: 058
  5. REMODULIN [Suspect]
     Active Substance: TREPROSTINIL
     Dosage: 0.046 ?G/KG, CONTINUING
     Route: 058

REACTIONS (9)
  - Infusion site pain [Unknown]
  - Swelling [Unknown]
  - Rhinovirus infection [Unknown]
  - Nausea [Unknown]
  - Fatigue [Unknown]
  - Productive cough [Unknown]
  - Dizziness [Unknown]
  - Sensitivity to weather change [Unknown]
  - Blood pressure decreased [Recovering/Resolving]

NARRATIVE: CASE EVENT DATE: 201604
